FAERS Safety Report 10247182 (Version 1)
Quarter: 2014Q2

REPORT INFORMATION
  Report Type: Spontaneous
  Country: IT (occurrence: None)
  Receive Date: 20140617
  Receipt Date: 20140617
  Transmission Date: 20141212
  Serious: Yes (Hospitalization)
  Sender: FDA-Public Use
  Company Number: AUR-APL-2014-06370

PATIENT
  Age: 46 Year
  Sex: Male

DRUGS (1)
  1. AMOXICILLIN 1G (AMOXICILLIN) UNKNOWN, 1G [Suspect]
     Indication: ABSCESS
     Dosage: 1 G, TOTAL, ORAL
     Route: 048
     Dates: start: 20140508, end: 20140508

REACTIONS (5)
  - Pruritus [None]
  - Urticaria [None]
  - Dyspnoea [None]
  - Heart rate increased [None]
  - Oxygen saturation decreased [None]
